FAERS Safety Report 5370484-3 (Version None)
Quarter: 2007Q2

REPORT INFORMATION
  Report Type: 
  Country: None (occurrence: None)
  Receive Date: 20070626
  Receipt Date: 20070322
  Transmission Date: 20071010
  Serious: No
  Sender: FDA-Public Use
  Company Number: US-AMGEN-US216253

PATIENT
  Age: 81 Year
  Sex: Male

DRUGS (4)
  1. ARANESP [Suspect]
     Indication: MYELODYSPLASTIC SYNDROME
     Route: 065
  2. ARANESP [Suspect]
     Indication: ANAEMIA OF MALIGNANT DISEASE
  3. REVLIMID [Concomitant]
     Route: 065
  4. DECADRON [Concomitant]
     Route: 065

REACTIONS (1)
  - ANAEMIA [None]
